FAERS Safety Report 23472058 (Version 5)
Quarter: 2025Q3

REPORT INFORMATION
  Report Type: Spontaneous
  Country: US (occurrence: US)
  Receive Date: 20240202
  Receipt Date: 20250709
  Transmission Date: 20251021
  Serious: No
  Sender: BIOMARIN
  Company Number: US-SA-SAC20240124001382

PATIENT
  Age: 6 Year
  Sex: Female
  Weight: 37.27 kg

DRUGS (10)
  1. ALDURAZYME [Suspect]
     Active Substance: LARONIDASE
     Indication: Mucopolysaccharidosis I
     Dosage: 17 MG, QW
     Dates: start: 202305
  2. ALDURAZYME [Suspect]
     Active Substance: LARONIDASE
     Dosage: 20 MG, QW
  3. ALDURAZYME [Suspect]
     Active Substance: LARONIDASE
     Dosage: 22 MG, QW
  4. ALDURAZYME [Suspect]
     Active Substance: LARONIDASE
     Dosage: 24 MG, QW
  5. ALDURAZYME [Suspect]
     Active Substance: LARONIDASE
  6. EPINEPHRINE [Concomitant]
     Active Substance: EPINEPHRINE
     Indication: Product used for unknown indication
  7. SODIUM CHLORIDE [Concomitant]
     Active Substance: SODIUM CHLORIDE
     Indication: Product used for unknown indication
  8. SODIUM CHLORIDE [Concomitant]
     Active Substance: SODIUM CHLORIDE
     Indication: Product used for unknown indication
  9. DIPHENHYDRAMINE [Concomitant]
     Active Substance: DIPHENHYDRAMINE
     Indication: Product used for unknown indication
  10. HEPARIN [Concomitant]
     Active Substance: HEPARIN SODIUM
     Indication: Product used for unknown indication

REACTIONS (2)
  - Influenza [Unknown]
  - Weight increased [Not Recovered/Not Resolved]

NARRATIVE: CASE EVENT DATE: 20240108
